FAERS Safety Report 18966926 (Version 1)
Quarter: 2021Q1

REPORT INFORMATION
  Report Type: Spontaneous
  Country: GB (occurrence: GB)
  Receive Date: 20210303
  Receipt Date: 20210303
  Transmission Date: 20210420
  Serious: Yes (Hospitalization, Other)
  Sender: FDA-Public Use
  Company Number: GB-AUROBINDO-AUR-APL-2021-008599

PATIENT
  Age: 74 Year
  Sex: Female

DRUGS (13)
  1. NAPROXEN. [Suspect]
     Active Substance: NAPROXEN
     Indication: RHEUMATOID ARTHRITIS
     Dosage: 500 MILLIGRAM
     Route: 048
     Dates: start: 20210221, end: 20210222
  2. MONTELUKAST SODIUM. [Concomitant]
     Active Substance: MONTELUKAST SODIUM
     Indication: ILL-DEFINED DISORDER
     Dosage: UNK
     Route: 065
  3. IRBESARTAN TEVA [Concomitant]
     Active Substance: IRBESARTAN
     Indication: ILL-DEFINED DISORDER
     Dosage: UNK
     Route: 065
  4. BENDROFLUMETHIAZIDE [Concomitant]
     Active Substance: BENDROFLUMETHIAZIDE
     Indication: ILL-DEFINED DISORDER
     Dosage: UNK
     Route: 065
  5. FELODIPINE. [Concomitant]
     Active Substance: FELODIPINE
     Indication: ILL-DEFINED DISORDER
     Dosage: UNK
     Route: 065
  6. LANSOPRAZOL [Concomitant]
     Active Substance: LANSOPRAZOLE
     Indication: ILL-DEFINED DISORDER
     Dosage: UNK
     Route: 065
  7. DULOXETINE HYDROCHLORIDE. [Concomitant]
     Active Substance: DULOXETINE HYDROCHLORIDE
     Indication: ILL-DEFINED DISORDER
     Dosage: UNK
     Route: 065
  8. GABAPENTIN. [Concomitant]
     Active Substance: GABAPENTIN
     Indication: ILL-DEFINED DISORDER
     Dosage: UNK
     Route: 065
  9. MORPHINE SULFATE. [Suspect]
     Active Substance: MORPHINE SULFATE
     Indication: RHEUMATOID ARTHRITIS
     Dosage: 20 MILLIGRAM, TWO TIMES A DAY
     Route: 048
     Dates: start: 20210221, end: 20210222
  10. LEFLUNOMID [Concomitant]
     Active Substance: LEFLUNOMIDE
     Indication: ILL-DEFINED DISORDER
     Dosage: UNK
     Route: 065
  11. PREGABALIN MYLAN [Concomitant]
     Active Substance: PREGABALIN
     Indication: ILL-DEFINED DISORDER
     Dosage: UNK
     Route: 065
  12. SULFASALAZINE. [Concomitant]
     Active Substance: SULFASALAZINE
     Indication: ILL-DEFINED DISORDER
     Dosage: UNK
     Route: 065
  13. AMITRIPTYLIN [Concomitant]
     Active Substance: AMITRIPTYLINE
     Indication: ILL-DEFINED DISORDER
     Dosage: UNK
     Route: 065

REACTIONS (4)
  - Medication error [Unknown]
  - Respiratory depression [Recovered/Resolved]
  - Acute kidney injury [Recovering/Resolving]
  - Gastrointestinal tract irritation [Recovering/Resolving]

NARRATIVE: CASE EVENT DATE: 20210221
